FAERS Safety Report 8534633-8 (Version None)
Quarter: 2012Q3

REPORT INFORMATION
  Report Type: 
  Country: None (occurrence: None)
  Receive Date: 20120724
  Receipt Date: 20120717
  Transmission Date: 20120928
  Serious: Yes (Other)
  Sender: FDA-Public Use
  Company Number: US-ABBOTT-12P-163-0948632-00

PATIENT
  Sex: Female
  Weight: 92 kg

DRUGS (11)
  1. LIPITOR [Concomitant]
     Indication: BLOOD CHOLESTEROL
  2. PROGESTERONE [Concomitant]
     Indication: HORMONE REPLACEMENT THERAPY
  3. POTASSIUM CHLORIDE [Concomitant]
     Indication: BLOOD PRESSURE
  4. HUMIRA [Suspect]
     Indication: PSORIASIS
     Dates: start: 20101101
  5. SAVELLA [Concomitant]
     Indication: PAIN
  6. VIVELLE [Concomitant]
     Indication: HORMONE REPLACEMENT THERAPY
     Dosage: PATCH
  7. SYNTHROID [Concomitant]
     Indication: PRODUCT USED FOR UNKNOWN INDICATION
  8. DIOVAN HCT [Concomitant]
     Indication: PRODUCT USED FOR UNKNOWN INDICATION
  9. TRAZODONE HYDROCHLORIDE [Concomitant]
     Indication: PAIN
  10. HUMIRA [Suspect]
     Indication: PSORIATIC ARTHROPATHY
  11. NORVASC [Concomitant]
     Indication: PRODUCT USED FOR UNKNOWN INDICATION

REACTIONS (2)
  - CYST [None]
  - LIPOMA [None]
